FAERS Safety Report 6064406-X (Version None)
Quarter: 2009Q1

REPORT INFORMATION
  Report Type: 
  Country: None (occurrence: None)
  Receive Date: 20090204
  Receipt Date: 20090128
  Transmission Date: 20090719
  Serious: Yes (Hospitalization)
  Sender: FDA-Public Use
  Company Number: US-AVENTIS-200910719US

PATIENT
  Age: 72 Year
  Sex: Female

DRUGS (3)
  1. LANTUS [Suspect]
     Route: 058
     Dates: start: 20050101
  2. OPTICLIK (INSULIN INJECTION PEN) [Suspect]
     Dates: start: 20050101
  3. WHOLE BAG [Concomitant]
     Dosage: DOSE: UNK

REACTIONS (3)
  - CONDITION AGGRAVATED [None]
  - TRANSIENT ISCHAEMIC ATTACK [None]
  - VISUAL ACUITY REDUCED [None]
